FAERS Safety Report 4524590-3 (Version None)
Quarter: 2004Q4

REPORT INFORMATION
  Report Type: 
  Country: None (occurrence: None)
  Receive Date: 20041117
  Receipt Date: 20040728
  Transmission Date: 20050328
  Serious: Yes (Hospitalization)
  Sender: FDA-Public Use
  Company Number: DE-JNJFOC-20040800155

PATIENT
  Age: 74 Year
  Sex: Female

DRUGS (5)
  1. LEVAQUIN [Suspect]
     Indication: PNEUMONIA
     Dates: start: 20030915, end: 20030915
  2. LEVOFLOXACIN [Suspect]
     Indication: PNEUMONIA
     Dosage: INTRAVENOUS
     Route: 042
     Dates: start: 20030916, end: 20030917
  3. LEVOFLOXACIN [Suspect]
     Indication: PNEUMONIA
     Dosage: ORAL
     Route: 048
     Dates: start: 20030918, end: 20030925
  4. DIFLUCAN [Concomitant]
  5. MYCOSTATIN [Concomitant]

REACTIONS (1)
  - TRACHEOBRONCHITIS [None]
